FAERS Safety Report 20465311 (Version 1)
Quarter: 2022Q1

REPORT INFORMATION
  Report Type: Spontaneous
  Country: None (occurrence: US)
  Receive Date: 20220212
  Receipt Date: 20220212
  Transmission Date: 20220423
  Serious: Yes (Hospitalization, Other)
  Sender: FDA-Public Use
  Company Number: US-Sunstar Americas Inc.-2125828

PATIENT
  Sex: Male
  Weight: 116.8 kg

DRUGS (93)
  1. PAROEX [Suspect]
     Active Substance: CHLORHEXIDINE GLUCONATE
     Indication: Pharyngitis
     Route: 002
     Dates: start: 20201009, end: 20201028
  2. XYLOCAINE(R) -MPF (LIDOCAINE HCI AND EPINEPHRINE) [Concomitant]
     Active Substance: EPINEPHRINE BITARTRATE\LIDOCAINE HYDROCHLORIDE ANHYDROUS
     Route: 042
     Dates: start: 20201019, end: 20201019
  3. XYLOCAINE(R) -MPF (LIDOCAINE HCI AND EPINEPHRINE) [Concomitant]
     Active Substance: EPINEPHRINE BITARTRATE\LIDOCAINE HYDROCHLORIDE ANHYDROUS
     Route: 042
     Dates: start: 20201017, end: 20201017
  4. LORAZEPAM [Concomitant]
     Active Substance: LORAZEPAM
     Route: 042
     Dates: start: 20201009, end: 20201011
  5. ACETAMINOPHEN [Concomitant]
     Active Substance: ACETAMINOPHEN
     Route: 042
     Dates: start: 20201012, end: 20201018
  6. EXTRA STRENGTH ACETAMINOPHEN 500 MG [Concomitant]
     Active Substance: ACETAMINOPHEN
     Route: 002
     Dates: start: 20201010, end: 20201017
  7. DEXMEDETOMIDINE HYDROCHLORIDE [Concomitant]
     Active Substance: DEXMEDETOMIDINE HYDROCHLORIDE
     Route: 042
     Dates: start: 20201015, end: 20201018
  8. AMIODARONE HYDROCHLORIDE [Concomitant]
     Active Substance: AMIODARONE HYDROCHLORIDE
     Route: 042
     Dates: start: 20201017, end: 20201027
  9. AMIODARONE HYDROCHLORIDE [Concomitant]
     Active Substance: AMIODARONE HYDROCHLORIDE
     Route: 002
     Dates: start: 20201014, end: 20201017
  10. CALCIUM CHLORIDE [Concomitant]
     Active Substance: CALCIUM CHLORIDE
     Route: 042
     Dates: start: 20201009, end: 20201019
  11. BIVALIRUDIN [Concomitant]
     Active Substance: BIVALIRUDIN
     Route: 042
     Dates: start: 20201019, end: 20201019
  12. ATROPINE [Concomitant]
     Active Substance: ATROPINE
     Route: 042
     Dates: start: 20201019, end: 20201029
  13. CEFAZOLIN SODIUM [Concomitant]
     Active Substance: CEFAZOLIN SODIUM
     Route: 042
     Dates: start: 20201015, end: 20201019
  14. CLONAZEPAM [Concomitant]
     Active Substance: CLONAZEPAM
     Route: 002
     Dates: start: 20201009, end: 20201014
  15. CHLOROTHIAZIDE SODIUM [Concomitant]
     Active Substance: CHLOROTHIAZIDE SODIUM
     Route: 042
     Dates: start: 20201017, end: 20201017
  16. FENTANYL [Concomitant]
     Active Substance: FENTANYL
     Route: 042
     Dates: start: 20201010, end: 20201019
  17. FOLIC ACID [Concomitant]
     Active Substance: FOLIC ACID
     Route: 042
     Dates: start: 20201011, end: 20201011
  18. ERYTHROMYCIN BASE [Concomitant]
     Active Substance: ERYTHROMYCIN
     Route: 002
     Dates: start: 20201014, end: 20201017
  19. ADRENALIN [Concomitant]
     Active Substance: EPINEPHRINE
     Route: 042
     Dates: start: 20201011, end: 20201018
  20. FUROSEMIDE [Concomitant]
     Active Substance: FUROSEMIDE
     Route: 042
     Dates: start: 20201015, end: 20201018
  21. FENTANYL CITRATE [Concomitant]
     Active Substance: FENTANYL CITRATE
     Route: 042
     Dates: start: 20201009, end: 20201018
  22. VASOPRESSIN [Concomitant]
     Active Substance: VASOPRESSIN
     Route: 042
     Dates: start: 20201012, end: 20201012
  23. EPINEPHRINE [Concomitant]
     Active Substance: EPINEPHRINE
     Route: 042
     Dates: start: 20201012, end: 20201012
  24. MILRINONE LACTATE IN DEXTROSE [Concomitant]
     Active Substance: MILRINONE LACTATE
     Route: 042
     Dates: start: 20201009, end: 20201009
  25. HYDROMORPHONE HCL [Concomitant]
     Active Substance: HYDROMORPHONE HYDROCHLORIDE
     Route: 042
     Dates: start: 20201018, end: 20201028
  26. HYDRALAZINE HYDROCHLORIDE [Concomitant]
     Active Substance: HYDRALAZINE HYDROCHLORIDE
     Route: 042
     Dates: start: 20201010, end: 20201011
  27. HALOPERIDOL [Concomitant]
     Active Substance: HALOPERIDOL
     Dates: start: 20201010, end: 20201017
  28. HEPARIN SODIUM AND SODIUM CHLORIDE [Concomitant]
     Active Substance: HEPARIN SODIUM
     Route: 042
     Dates: start: 20201009, end: 20201019
  29. HEPARIN SODIUM [Concomitant]
     Active Substance: HEPARIN SODIUM
     Route: 042
     Dates: start: 20201014, end: 20201017
  30. LIDOCAINE HYDROCHLORIDE [Concomitant]
     Active Substance: LIDOCAINE HYDROCHLORIDE
     Route: 042
     Dates: start: 20201013, end: 20201013
  31. LACTATED RINGERS SOLUTION [Concomitant]
     Active Substance: CALCIUM CHLORIDE\POTASSIUM CHLORIDE\SODIUM CHLORIDE\SODIUM LACTATE
     Route: 042
     Dates: start: 20201009, end: 20201009
  32. THIAMINE [Concomitant]
     Active Substance: THIAMINE
     Route: 042
     Dates: start: 20201011, end: 20201011
  33. SENNA [Concomitant]
     Active Substance: SENNA LEAF\SENNOSIDES\SENNOSIDES A AND B
     Route: 002
     Dates: start: 20201014, end: 20201018
  34. SENNA LIQUID [Concomitant]
     Active Substance: SENNOSIDES
     Route: 048
     Dates: start: 20201009, end: 20201019
  35. SODIUM BICARBONATE [Concomitant]
     Active Substance: SODIUM BICARBONATE
     Route: 042
     Dates: start: 20201019, end: 20201019
  36. BSS [Concomitant]
     Active Substance: CALCIUM CHLORIDE\MAGNESIUM CHLORIDE\POTASSIUM CHLORIDE\SODIUM ACETATE\SODIUM CHLORIDE\SODIUM CITRATE
     Route: 047
     Dates: start: 20201015, end: 20201028
  37. MICAFUNGIN. [Concomitant]
     Active Substance: MICAFUNGIN SODIUM
     Route: 042
     Dates: start: 20201016, end: 20201019
  38. METHOCARBAMOL [Concomitant]
     Active Substance: METHOCARBAMOL
     Route: 042
     Dates: start: 20201016, end: 20201016
  39. METOCLOPRAMIDE [Concomitant]
     Active Substance: METOCLOPRAMIDE
     Route: 042
     Dates: start: 20201013, end: 20201015
  40. MIDAZOLAM [Concomitant]
     Active Substance: MIDAZOLAM
     Route: 042
     Dates: start: 20201012, end: 20201012
  41. MIDAZOLAM [Concomitant]
     Active Substance: MIDAZOLAM
     Route: 042
     Dates: start: 20201010, end: 20201019
  42. MUPIROCIN [Concomitant]
     Active Substance: MUPIROCIN
     Route: 045
     Dates: start: 20201009, end: 20201016
  43. PROPOFOL [Concomitant]
     Active Substance: PROPOFOL
     Route: 042
     Dates: start: 20201012, end: 20201013
  44. ROXICODONE [Concomitant]
     Active Substance: OXYCODONE HYDROCHLORIDE
     Route: 002
     Dates: start: 20201017, end: 20201017
  45. EQUALINE OXYMETAZOLINE HCL NASAL DECONGESTANT NO DRIP [Concomitant]
     Active Substance: OXYMETAZOLINE HYDROCHLORIDE
     Route: 045
     Dates: start: 20201014, end: 20201014
  46. PANTOPRAZOLE SODIUM [Concomitant]
     Active Substance: PANTOPRAZOLE SODIUM
     Route: 042
     Dates: start: 20201009, end: 20201019
  47. PHENYLEPHRINE [Concomitant]
     Active Substance: PHENYLEPHRINE HYDROCHLORIDE
     Route: 042
     Dates: start: 20201019, end: 20201019
  48. MIRALAX [Concomitant]
     Active Substance: POLYETHYLENE GLYCOL 3350
     Route: 048
     Dates: start: 20201009, end: 20201017
  49. ROCURONIUM BROMIDE [Concomitant]
     Active Substance: ROCURONIUM BROMIDE
     Route: 042
     Dates: start: 20201011, end: 20201011
  50. ROCURONIUM BROMIDE [Concomitant]
     Active Substance: ROCURONIUM BROMIDE
     Route: 042
     Dates: start: 20201009, end: 20201012
  51. QUETIAPINE [Concomitant]
     Active Substance: QUETIAPINE
     Route: 002
     Dates: start: 20201012, end: 20201013
  52. SODIUM CHLORIDE [Concomitant]
     Active Substance: SODIUM CHLORIDE
     Route: 042
     Dates: start: 20201013, end: 20201018
  53. SODIUM CHLORIDE [Concomitant]
     Active Substance: SODIUM CHLORIDE
     Route: 042
     Dates: start: 20201011, end: 20201018
  54. DEXTROSE MONOHYDRATE [Concomitant]
     Active Substance: DEXTROSE MONOHYDRATE
     Route: 042
     Dates: start: 20201009, end: 20201014
  55. DEXTROSE MONOHYDRATE [Concomitant]
     Active Substance: DEXTROSE MONOHYDRATE
     Route: 042
     Dates: start: 20201014, end: 20201017
  56. DEXTROSE MONOHYDRATE [Concomitant]
     Active Substance: DEXTROSE MONOHYDRATE
     Route: 042
     Dates: start: 20201015, end: 20201019
  57. DEXTROSE [Concomitant]
     Active Substance: DEXTROSE
     Route: 042
     Dates: start: 20201009, end: 20201013
  58. LIDOCAINE VISCOUS [Concomitant]
     Active Substance: LIDOCAINE HYDROCHLORIDE
     Route: 042
     Dates: start: 20201013, end: 20201013
  59. DUONEB [Concomitant]
     Active Substance: ALBUTEROL SULFATE\IPRATROPIUM BROMIDE
     Route: 055
     Dates: start: 20201016, end: 20201019
  60. CORDARONE [Concomitant]
     Active Substance: AMIODARONE HYDROCHLORIDE
     Route: 042
     Dates: start: 20201012, end: 20201018
  61. NEXTERONE (AMIODARONE HCI) [Concomitant]
     Active Substance: AMIODARONE HYDROCHLORIDE
     Route: 042
     Dates: start: 20201012, end: 20201019
  62. PRECEDEX [Concomitant]
     Active Substance: DEXMEDETOMIDINE HYDROCHLORIDE
     Route: 042
     Dates: start: 20201009, end: 20201015
  63. ARTIFICIAL TEARS [Concomitant]
     Active Substance: GLYCERIN\HYPROMELLOSES\POLYETHYLENE GLYCOL 400
     Route: 047
     Dates: start: 20201018, end: 20201019
  64. ASPIRIN [Concomitant]
     Active Substance: ASPIRIN
     Route: 002
     Dates: start: 20201009, end: 20201019
  65. CEFEPIME HYDROCHLORIDE [Concomitant]
     Active Substance: CEFEPIME HYDROCHLORIDE
     Route: 042
     Dates: start: 20201015, end: 20201019
  66. NIMBEX [Concomitant]
     Active Substance: CISATRACURIUM BESYLATE
     Route: 042
     Dates: start: 20201018, end: 20201019
  67. DEXTROSE MONOHYDRATE [Concomitant]
     Active Substance: DEXTROSE MONOHYDRATE
     Route: 042
     Dates: start: 20201009, end: 20201013
  68. DEXTROSE [Concomitant]
     Active Substance: DEXTROSE
     Route: 042
     Dates: start: 20201009, end: 20201019
  69. DOCUSATE SODIUM [Concomitant]
     Active Substance: DOCUSATE SODIUM
     Route: 048
     Dates: start: 20201009, end: 20201013
  70. DOCUSATE SODIUM [Concomitant]
     Active Substance: DOCUSATE SODIUM
     Route: 048
     Dates: start: 20201013, end: 20201019
  71. PHARBETOL [Concomitant]
     Active Substance: ACETAMINOPHEN
     Route: 002
     Dates: start: 20201010, end: 20201017
  72. ALBUMINAR-25 [Concomitant]
     Active Substance: ALBUMIN HUMAN
     Route: 042
     Dates: start: 20201012, end: 20201012
  73. ALBUMINAR-5 [Concomitant]
     Active Substance: ALBUMIN HUMAN
     Route: 042
     Dates: start: 20201009, end: 20201018
  74. NEXTERONE (AMIODARONE HCI) [Concomitant]
     Active Substance: AMIODARONE HYDROCHLORIDE
     Route: 042
     Dates: start: 20201012, end: 20201018
  75. AMIDATE(TM) ETOMIDATE [Concomitant]
     Active Substance: ETOMIDATE
     Route: 042
     Dates: start: 20201011, end: 20201011
  76. FENTANYL CITRATE [Concomitant]
     Active Substance: FENTANYL CITRATE
     Route: 042
     Dates: start: 20201012, end: 20201012
  77. HUMULIN R [Concomitant]
     Active Substance: INSULIN HUMAN
     Route: 042
     Dates: start: 20201012, end: 20201012
  78. DEXMEDETOMIDINE HYDROCHLORIDE [Concomitant]
     Active Substance: DEXMEDETOMIDINE HYDROCHLORIDE
     Route: 042
     Dates: start: 20201012, end: 20201012
  79. HEPARIN SODIUM [Concomitant]
     Active Substance: HEPARIN SODIUM
     Route: 042
     Dates: start: 20201009, end: 20201019
  80. HYDROMORPHONE HCL [Concomitant]
     Active Substance: HYDROMORPHONE HYDROCHLORIDE
     Route: 042
     Dates: start: 20201018, end: 20201018
  81. HYDROMORPHONE HYDROCHLORIDE [Concomitant]
     Active Substance: HYDROMORPHONE HYDROCHLORIDE
     Route: 042
     Dates: start: 20201019, end: 20201019
  82. LIDOCAINE HYDROCHLORIDE [Concomitant]
     Active Substance: LIDOCAINE HYDROCHLORIDE
     Route: 042
     Dates: start: 20201018, end: 20201018
  83. LORAZEPAM [Concomitant]
     Active Substance: LORAZEPAM
     Route: 042
     Dates: start: 20201009, end: 20201011
  84. HUMULIN R [Concomitant]
     Active Substance: INSULIN HUMAN
     Route: 042
     Dates: start: 20201009, end: 20201019
  85. MAGNESIUM SULFATE IN WATER [Concomitant]
     Active Substance: MAGNESIUM SULFATE HEPTAHYDRATE
     Route: 042
     Dates: start: 20201009, end: 20201028
  86. POTASSIUM CHLORIDE [Concomitant]
     Active Substance: POTASSIUM CHLORIDE
     Route: 047
     Dates: start: 20201009, end: 20201017
  87. NOREPINEPHRINE BITARTRATE [Concomitant]
     Active Substance: NOREPINEPHRINE BITARTRATE
     Route: 042
     Dates: start: 20201015, end: 20201018
  88. INFUVITE ADULT MULTIPLE VITAMINS [Concomitant]
     Active Substance: ALPHA-TOCOPHEROL ACETATE\ASCORBIC ACID\BIOTIN\CHOLECALCIFEROL\CYANOCOBALAMIN\DEXPANTHENOL\FOLIC ACID
     Route: 048
     Dates: start: 20201011, end: 20201011
  89. KETAMINE HYDROCHLORIDE [Concomitant]
     Active Substance: KETAMINE HYDROCHLORIDE
     Route: 042
     Dates: start: 20201019, end: 20201019
  90. SODIUM CHLORIDE [Concomitant]
     Active Substance: SODIUM CHLORIDE
     Route: 042
     Dates: start: 20201019, end: 20201019
  91. VANCOMYCIN HYDROCHLORIDE [Concomitant]
     Active Substance: VANCOMYCIN HYDROCHLORIDE
     Route: 042
     Dates: start: 20201016, end: 20201016
  92. VANCOMYCIN HYDROCHLORIDE [Concomitant]
     Active Substance: VANCOMYCIN HYDROCHLORIDE
     Route: 042
     Dates: start: 20201019, end: 20201019
  93. VANCOMYCIN HYDROCHLORIDE [Concomitant]
     Active Substance: VANCOMYCIN HYDROCHLORIDE
     Route: 042
     Dates: start: 20201015, end: 20201015

REACTIONS (2)
  - Chest pain [Unknown]
  - Burkholderia test positive [Unknown]

NARRATIVE: CASE EVENT DATE: 20201009
